FAERS Safety Report 5241399-6 (Version None)
Quarter: 2007Q1

REPORT INFORMATION
  Report Type: 
  Country: None (occurrence: None)
  Receive Date: 20070215
  Receipt Date: 20070215
  Transmission Date: 20070707
  Serious: Yes (Hospitalization)
  Sender: FDA-Public Use
  Company Number: None

PATIENT
  Sex: Female
  Weight: 73.0291 kg

DRUGS (10)
  1. MEGACE [Suspect]
     Indication: WEIGHT CONTROL
     Dosage: 800 MG QDAY
     Dates: start: 20061117
  2. COLACE [Concomitant]
  3. PERCOCET [Concomitant]
  4. OXYCODONE HCL [Concomitant]
  5. PROCHOLPERAZINE MALEATE [Concomitant]
  6. KYTRIL [Concomitant]
  7. LEXARPO [Concomitant]
  8. ALPRZOLAM [Concomitant]
  9. LEVAQUIN [Concomitant]
  10. POTASSIUM CHLORIDE [Concomitant]

REACTIONS (3)
  - CONFUSIONAL STATE [None]
  - PNEUMONIA [None]
  - SEPSIS [None]
